FAERS Safety Report 11301295 (Version 1)
Quarter: 2015Q3

REPORT INFORMATION
  Report Type: Spontaneous
  Country: IN (occurrence: None)
  Receive Date: 20150722
  Receipt Date: 20150722
  Transmission Date: 20151125
  Serious: Yes (Death, Hospitalization)
  Sender: FDA-Public Use
  Company Number: 2015HINLIT0577

PATIENT
  Age: 26 Year
  Sex: Female

DRUGS (1)
  1. LAMIVUDINE+ZIDIVUDINE+NEVIRAPINE [Suspect]
     Active Substance: LAMIVUDINE\NEVIRAPINE\ZIDOVUDINE
     Indication: HIV INFECTION

REACTIONS (7)
  - Gastritis [None]
  - White blood cell count decreased [None]
  - Haemolytic anaemia [None]
  - Splenomegaly [None]
  - Hepatomegaly [None]
  - HIV infection [None]
  - Cough [None]
